FAERS Safety Report 5934283-3 (Version None)
Quarter: 2008Q4

REPORT INFORMATION
  Report Type: 
  Country: None (occurrence: None)
  Receive Date: 20081029
  Receipt Date: 20081017
  Transmission Date: 20090506
  Serious: Yes (Other)
  Sender: FDA-Public Use
  Company Number: PHEH2008US09626

PATIENT

DRUGS (1)
  1. RECLAST [Suspect]

REACTIONS (1)
  - NEPHROLITHIASIS [None]
